FAERS Safety Report 22079213 (Version 1)
Quarter: 2023Q1

REPORT INFORMATION
  Report Type: Spontaneous
  Country: US (occurrence: US)
  Receive Date: 20230309
  Receipt Date: 20230309
  Transmission Date: 20230418
  Serious: No
  Sender: FDA-Public Use
  Company Number: US-TAKEDA-2023TUS023870

PATIENT
  Sex: Female
  Weight: 82 kg

DRUGS (1)
  1. COLCRYS [Suspect]
     Active Substance: COLCHICINE
     Indication: Chondrocalcinosis
     Dosage: 0.6 MILLIGRAM, BID
     Route: 065

REACTIONS (2)
  - Malaise [Unknown]
  - Product use in unapproved indication [Unknown]
